FAERS Safety Report 6510213-0 (Version None)
Quarter: 2009Q4

REPORT INFORMATION
  Report Type: 
  Country: None (occurrence: None)
  Receive Date: 20091222
  Receipt Date: 20091217
  Transmission Date: 20100525
  Serious: Yes (Other)
  Sender: FDA-Public Use
  Company Number: SE-BRISTOL-MYERS SQUIBB COMPANY-14898993

PATIENT
  Age: 62 Year
  Sex: Female

DRUGS (4)
  1. ORENCIA [Suspect]
     Indication: RHEUMATOID ARTHRITIS
     Dosage: 1DOSAGEFORM=250 MG AT A DOSE OF 750 MILLIGRAM
     Route: 042
     Dates: start: 20090513, end: 20091007
  2. SELOKEN ZOC [Concomitant]
     Dosage: TABS
  3. IBRUPROFEN [Concomitant]
     Dosage: FILM-COATED TABLET
  4. ZANTAC [Concomitant]
     Dosage: 1DOSAGEFORM=15 MG/ML
     Route: 048

REACTIONS (7)
  - AMNESIA [None]
  - DIZZINESS [None]
  - DYSPNOEA [None]
  - FEELING ABNORMAL [None]
  - HEADACHE [None]
  - LIP SWELLING [None]
  - OEDEMA [None]
